FAERS Safety Report 15150474 (Version 1)
Quarter: 2018Q3

REPORT INFORMATION
  Report Type: Spontaneous
  Country: AT (occurrence: AT)
  Receive Date: 20180716
  Receipt Date: 20180716
  Transmission Date: 20181010
  Serious: Yes (Other)
  Sender: FDA-Public Use
  Company Number: AT-MYLANLABS-2018M1051115

PATIENT
  Age: 38 Year
  Sex: Male

DRUGS (3)
  1. ESCITALOPRAM [Suspect]
     Active Substance: ESCITALOPRAM OXALATE
     Indication: DEPRESSION
     Dosage: UNK
     Route: 065
  2. ESCITALOPRAM [Suspect]
     Active Substance: ESCITALOPRAM OXALATE
     Indication: PANIC DISORDER
     Dosage: DOUBLED DOSAGE
     Route: 065
  3. DEXTROMETHORPHAN HYDROBROMIDE W/DOX/01062901/ [Suspect]
     Active Substance: ACETAMINOPHEN\DEXTROMETHORPHAN HYDROBROMIDE\DOXYLAMINE\EPHEDRINE SULFATE
     Indication: PRODUCT USED FOR UNKNOWN INDICATION
     Dosage: UNK
     Route: 048

REACTIONS (10)
  - Labelled drug-drug interaction medication error [Unknown]
  - Tachypnoea [Recovered/Resolved]
  - Tremor [Recovered/Resolved]
  - Hyperhidrosis [Recovered/Resolved]
  - Hyperreflexia [Recovered/Resolved]
  - Serotonin syndrome [Recovered/Resolved]
  - Autonomic nervous system imbalance [Recovered/Resolved]
  - Cognitive disorder [Recovered/Resolved]
  - Restlessness [Recovered/Resolved]
  - Anxiety [Recovered/Resolved]
